FAERS Safety Report 6882099-6 (Version None)
Quarter: 2010Q3

REPORT INFORMATION
  Report Type: 
  Country: None (occurrence: None)
  Receive Date: 20100702
  Receipt Date: 20100119
  Transmission Date: 20110219
  Serious: Yes (Other)
  Sender: FDA-Public Use
  Company Number: 2010011084

PATIENT
  Sex: Male
  Weight: 90.7 kg

DRUGS (1)
  1. ZOLOFT [Suspect]
     Indication: OBSESSIVE-COMPULSIVE DISORDER

REACTIONS (2)
  - AGGRESSION [None]
  - PANIC ATTACK [None]
